FAERS Safety Report 8123354-1 (Version None)
Quarter: 2012Q1

REPORT INFORMATION
  Report Type: 
  Country: None (occurrence: None)
  Receive Date: 20120208
  Receipt Date: 20120208
  Transmission Date: 20120608
  Serious: Yes (Life-Threatening, Hospitalization, Other)
  Sender: FDA-Public Use
  Company Number: SE-PFIZER INC-2011266597

PATIENT
  Age: 49 Year
  Sex: Female

DRUGS (2)
  1. VARENICLINE TARTRATE [Suspect]
     Dosage: 1.5 MG, DAILY
     Dates: end: 20111001
  2. VARENICLINE TARTRATE [Suspect]
     Indication: SMOKING CESSATION THERAPY
     Dosage: UNK
     Route: 048
     Dates: start: 20110923

REACTIONS (10)
  - FATIGUE [None]
  - SUICIDE ATTEMPT [None]
  - THINKING ABNORMAL [None]
  - MALAISE [None]
  - PANIC REACTION [None]
  - ANXIETY [None]
  - COGNITIVE DISORDER [None]
  - LOSS OF CONSCIOUSNESS [None]
  - SLEEP DISORDER [None]
  - DEPRESSION [None]
